FAERS Safety Report 10350523 (Version 1)
Quarter: 2014Q3

REPORT INFORMATION
  Report Type: Report from Study
  Country: FR (occurrence: FR)
  Receive Date: 20140730
  Receipt Date: 20140730
  Transmission Date: 20150326
  Serious: Yes (Hospitalization)
  Sender: FDA-Public Use
  Company Number: FR-ABBVIE-14P-056-1265433-00

PATIENT
  Age: 41 Year
  Sex: Female

DRUGS (10)
  1. HUMIRA [Suspect]
     Active Substance: ADALIMUMAB
     Route: 058
     Dates: end: 20120521
  2. HUMIRA [Suspect]
     Active Substance: ADALIMUMAB
     Dosage: WEEK 2
     Route: 058
  3. PROFAN [Concomitant]
     Indication: KNEE OPERATION
     Dates: start: 201005, end: 201406
  4. SOLUPRED [Concomitant]
     Active Substance: PREDNISOLONE
     Indication: ANAPHYLACTIC REACTION
     Dates: start: 20120521, end: 20120521
  5. HUMIRA [Suspect]
     Active Substance: ADALIMUMAB
     Indication: CROHN^S DISEASE
     Dosage: BASELINE
     Route: 058
     Dates: start: 20080129, end: 20080129
  6. PREDNISONE. [Concomitant]
     Active Substance: PREDNISONE
     Dates: start: 200411, end: 201208
  7. PYOSTACINE [Concomitant]
     Active Substance: PRISTINAMYCIN
     Indication: ERYSIPELAS
     Dates: start: 20101106, end: 20101126
  8. PREDNISONE. [Concomitant]
     Active Substance: PREDNISONE
     Dates: start: 20121004
  9. PREDNISONE. [Concomitant]
     Active Substance: PREDNISONE
     Dates: start: 201208, end: 20121003
  10. PREDNISONE. [Concomitant]
     Active Substance: PREDNISONE
     Indication: CROHN^S DISEASE

REACTIONS (1)
  - Subileus [Not Recovered/Not Resolved]

NARRATIVE: CASE EVENT DATE: 20140422
